FAERS Safety Report 15154898 (Version 1)
Quarter: 2018Q3

REPORT INFORMATION
  Report Type: Spontaneous
  Country: US (occurrence: US)
  Receive Date: 20180717
  Receipt Date: 20180717
  Transmission Date: 20181010
  Serious: Yes (Death, Other)
  Sender: FDA-Public Use
  Company Number: US-ALKERMES INC.-ALK-2018-003718

PATIENT

DRUGS (1)
  1. ARISTADA [Suspect]
     Active Substance: ARIPIPRAZOLE LAUROXIL
     Indication: PRODUCT USED FOR UNKNOWN INDICATION
     Route: 030

REACTIONS (5)
  - Psychotic disorder [Unknown]
  - Drug level decreased [Unknown]
  - Death [Fatal]
  - Incorrect route of drug administration [Unknown]
  - Psychotic behaviour [Unknown]
